FAERS Safety Report 5274488-0 (Version None)
Quarter: 2007Q1

REPORT INFORMATION
  Report Type: 
  Country: None (occurrence: None)
  Receive Date: 20070323
  Receipt Date: 20070312
  Transmission Date: 20070707
  Serious: Yes (Other)
  Sender: FDA-Public Use
  Company Number: US-PFIZER INC-2007019746

PATIENT
  Sex: Female
  Weight: 65.8 kg

DRUGS (2)
  1. LIPITOR [Suspect]
     Indication: ARTERIAL OCCLUSIVE DISEASE
     Route: 048
  2. LORAZEPAM [Concomitant]
     Indication: PANIC ATTACK

REACTIONS (4)
  - BURNING SENSATION [None]
  - CHEST PAIN [None]
  - MEMORY IMPAIRMENT [None]
  - PANIC ATTACK [None]
